FAERS Safety Report 5852854-X (Version None)
Quarter: 2008Q3

REPORT INFORMATION
  Report Type: 
  Country: None (occurrence: None)
  Receive Date: 20080821
  Receipt Date: 20080819
  Transmission Date: 20090109
  Serious: Yes (Other)
  Sender: FDA-Public Use
  Company Number: A0743187A

PATIENT
  Age: 48 Year
  Sex: Male

DRUGS (1)
  1. COMMIT [Suspect]
     Indication: SMOKING CESSATION THERAPY
     Dates: start: 20080521, end: 20080809

REACTIONS (2)
  - NEUROPATHY PERIPHERAL [None]
  - PAIN IN EXTREMITY [None]
